FAERS Safety Report 21866441 (Version 8)
Quarter: 2024Q4

REPORT INFORMATION
  Report Type: Spontaneous
  Country: US (occurrence: US)
  Receive Date: 20230116
  Receipt Date: 20241226
  Transmission Date: 20250114
  Serious: Yes (Other)
  Sender: PFIZER
  Company Number: US-PFIZER INC-PV202300008857

PATIENT
  Age: 67 Year
  Sex: Female

DRUGS (4)
  1. IBRANCE [Suspect]
     Active Substance: PALBOCICLIB
     Indication: Breast cancer female
     Dosage: (1 TABLET DAILY 3 WEEKS ON 1 WEEK OFF)
     Route: 048
     Dates: start: 20221114
  2. IBRANCE [Suspect]
     Active Substance: PALBOCICLIB
     Dosage: (1 TABLET DAILY 3 WEEKS ON 1 WEEK OFF)
     Route: 048
     Dates: start: 20221229
  3. IBRANCE [Suspect]
     Active Substance: PALBOCICLIB
     Dosage: 75 MG, TAKE 1 TABLET DAILY
     Route: 048
  4. IBRANCE [Suspect]
     Active Substance: PALBOCICLIB
     Dosage: 1 P.O. DAILY FOR 3 WEEKS AND 1 WEEK OFF
     Route: 048
     Dates: start: 20241210

REACTIONS (4)
  - Leukopenia [Unknown]
  - Pancytopenia [Unknown]
  - Neutropenia [Unknown]
  - Anaemia [Unknown]
